FAERS Safety Report 23342769 (Version 5)
Quarter: 2024Q3

REPORT INFORMATION
  Report Type: Report from Study
  Country: CA (occurrence: CA)
  Receive Date: 20231227
  Receipt Date: 20240913
  Transmission Date: 20241017
  Serious: Yes (Hospitalization, Other)
  Sender: AEGERION
  Company Number: CA-AMRYT PHARMACEUTICALS DAC-AEGR006714

PATIENT

DRUGS (23)
  1. JUXTAPID [Suspect]
     Active Substance: LOMITAPIDE MESYLATE
     Indication: Type IIa hyperlipidaemia
     Dosage: 5 MILLIGRAM, Q2DX3 DAYS
     Route: 048
     Dates: start: 20231006, end: 20231212
  2. JUXTAPID [Suspect]
     Active Substance: LOMITAPIDE MESYLATE
     Dosage: 5 MILLIGRAM DIE
     Route: 048
     Dates: start: 20231006, end: 20231212
  3. JUXTAPID [Suspect]
     Active Substance: LOMITAPIDE MESYLATE
     Dosage: TAKE 1 TABLET ONCE A DAY AT BEDTIME WITH 2 CAPSULES OF 25MG
  4. JUXTAPID [Suspect]
     Active Substance: LOMITAPIDE MESYLATE
     Dosage: GRADUAL RESUMPTION OF 5 TO 10 MG OVER 2 WEEKS (2*5MG)
  5. JUXTAPID [Suspect]
     Active Substance: LOMITAPIDE MESYLATE
     Dosage: 10 MILLIGRAM, QD
     Route: 048
     Dates: start: 20231006, end: 20231212
  6. JUXTAPID [Suspect]
     Active Substance: LOMITAPIDE MESYLATE
     Dosage: 5 MILLIGRAM 2CO DIE
     Dates: start: 20240110
  7. JUXTAPID [Suspect]
     Active Substance: LOMITAPIDE MESYLATE
     Dosage: 10 MILLIGRAM, QD
     Route: 048
     Dates: start: 20240112
  8. JUXTAPID [Suspect]
     Active Substance: LOMITAPIDE MESYLATE
     Dosage: 15 MILLIGRAM, CAPSULE QD
     Route: 048
     Dates: start: 20240510
  9. ATORVASTATIN [Concomitant]
     Active Substance: ATORVASTATIN
     Indication: Product used for unknown indication
     Dosage: 80 MILLIGRAM
     Dates: start: 201905
  10. ATORVASTATIN [Concomitant]
     Active Substance: ATORVASTATIN
     Dosage: TAKE 1 TABLET ONCE A DAY - IN THE EVENING AT BEDTIME
  11. EZETIMIBE [Concomitant]
     Active Substance: EZETIMIBE
     Indication: Product used for unknown indication
     Dosage: 10 MILLIGRAM
     Dates: start: 200701
  12. EZETIMIBE [Concomitant]
     Active Substance: EZETIMIBE
     Dosage: TAKE 1 TABLET ONCE A DAY AT BEDTIME
  13. EVOLOCUMAB [Concomitant]
     Active Substance: EVOLOCUMAB
     Indication: Product used for unknown indication
     Dosage: 420 MILLIGRAM, Q2WEEKS
     Route: 058
     Dates: start: 20230317
  14. CLOZARIL [Concomitant]
     Active Substance: CLOZAPINE
     Indication: Product used for unknown indication
     Dosage: 1 TABLET ONCE A DAY AT BEDTIME WITH 2 CAPSULES OF 25MG
  15. CLOZARIL [Concomitant]
     Active Substance: CLOZAPINE
     Dosage: 2 TABLETS ONCE A DAY AT BEDTIME WITH 1 CAPSULE OF 100 MG
  16. CLOZARIL [Concomitant]
     Active Substance: CLOZAPINE
     Dosage: 150 MILLIGRAM PER OS HS
  17. ABILIFY [Concomitant]
     Active Substance: ARIPIPRAZOLE
     Indication: Product used for unknown indication
     Dosage: 2 MILLIGRAM
  18. LIPITOR [Concomitant]
     Active Substance: ATORVASTATIN CALCIUM
     Indication: Product used for unknown indication
     Dosage: 40 MILLIGRAM
  19. EZETIMIBE [Concomitant]
     Active Substance: EZETIMIBE
     Indication: Product used for unknown indication
     Dosage: 10 MILLIGRAM
  20. RANITIDINE [Concomitant]
     Active Substance: RANITIDINE
     Indication: Product used for unknown indication
     Dosage: 150 MILLIGRAM, QD AT BEDTIME
  21. PMS ARIPIPRAZOLE [Concomitant]
     Indication: Product used for unknown indication
     Dosage: 1 TABLET ONCE A DAY IN THE MORNING
  22. OMEGA 3-6-9 [BORAGO OFFICINALIS OIL;FISH OIL;LINUM USITATISSIMUM OIL] [Concomitant]
     Indication: Product used for unknown indication
     Dosage: TAKE 2 CAPSULES 1 TIME A DAY WITH SUPPER
  23. TOCOPHEROL [Concomitant]
     Active Substance: TOCOPHEROL
     Indication: Product used for unknown indication
     Dosage: TAKE 1 CAPSULE ONCE A DAY AT SUPPERTIME

REACTIONS (6)
  - Hospitalisation [Unknown]
  - Alanine aminotransferase increased [Recovered/Resolved]
  - Aspartate aminotransferase increased [Recovered/Resolved]
  - Dyspepsia [Unknown]
  - Nausea [Unknown]
  - Inappropriate schedule of product administration [Unknown]

NARRATIVE: CASE EVENT DATE: 20231207
